FAERS Safety Report 8853128 (Version 2)
Quarter: 2012Q4

REPORT INFORMATION
  Report Type: 
  Country: US (occurrence: US)
  Receive Date: 20121023
  Receipt Date: 20121031
  Transmission Date: 20130627
  Serious: No
  Sender: FDA-Public Use
  Company Number: US-009507513-1210USA004265

PATIENT
  Sex: Male

DRUGS (5)
  1. PEGINTRON [Suspect]
     Indication: HEPATITIS C
     Dosage: 150 Microgram, qw
     Route: 058
     Dates: start: 20120917
  2. RIBASPHERE [Suspect]
     Indication: HEPATITIS C
  3. TELAPREVIR [Suspect]
     Indication: HEPATITIS C
  4. AMBIEN [Concomitant]
  5. CLONAZEPAM [Concomitant]

REACTIONS (4)
  - Drug-induced liver injury [Unknown]
  - Nipple disorder [Unknown]
  - Nipple pain [Unknown]
  - Pruritus generalised [Unknown]
